FAERS Safety Report 7494365-4 (Version None)
Quarter: 2011Q2

REPORT INFORMATION
  Report Type: 
  Country: None (occurrence: None)
  Receive Date: 20110520
  Receipt Date: 20110509
  Transmission Date: 20111010
  Serious: Yes (Hospitalization)
  Sender: FDA-Public Use
  Company Number: HK-MERCK-1105USA01996

PATIENT
  Age: 80 Year
  Sex: Female

DRUGS (3)
  1. NICERGOLINE [Concomitant]
     Indication: DEMENTIA
     Route: 065
  2. ZOCOR [Suspect]
     Indication: TYPE IIA HYPERLIPIDAEMIA
     Route: 048
  3. DILTIAZEM HCL [Suspect]
     Indication: HYPERTENSION
     Route: 065

REACTIONS (2)
  - MYOPATHY [None]
  - DRUG INTERACTION [None]
